FAERS Safety Report 11101162 (Version 3)
Quarter: 2015Q2

REPORT INFORMATION
  Report Type: Spontaneous
  Country: US (occurrence: US)
  Receive Date: 20150508
  Receipt Date: 20150616
  Transmission Date: 20150821
  Serious: No
  Sender: FDA-Public Use
  Company Number: US-PFIZER INC-2015143303

PATIENT
  Age: 63 Year
  Sex: Female
  Weight: 66 kg

DRUGS (4)
  1. CHILDRENS ADVIL [Suspect]
     Active Substance: IBUPROFEN
     Indication: DISCOMFORT
  2. CHILDRENS IBUPROFEN [Suspect]
     Active Substance: IBUPROFEN
     Indication: POLYMYALGIA RHEUMATICA
     Dosage: LIQUID, 200 MG, 2X/DAY
     Dates: start: 201501
  3. CHILDRENS IBUPROFEN [Suspect]
     Active Substance: IBUPROFEN
     Indication: DISCOMFORT
  4. CHILDRENS ADVIL [Suspect]
     Active Substance: IBUPROFEN
     Indication: POLYMYALGIA RHEUMATICA
     Dosage: 200 MG, 2X/DAY, (TWO TEASPOONS TWICE A DAY)
     Dates: start: 201501

REACTIONS (3)
  - Intentional product misuse [Not Recovered/Not Resolved]
  - Myalgia [Not Recovered/Not Resolved]
  - Drug ineffective [Not Recovered/Not Resolved]

NARRATIVE: CASE EVENT DATE: 201501
